FAERS Safety Report 13969884 (Version 3)
Quarter: 2017Q4

REPORT INFORMATION
  Report Type: Spontaneous
  Country: US (occurrence: US)
  Receive Date: 20170914
  Receipt Date: 20171023
  Transmission Date: 20180321
  Serious: Yes (Death, Other)
  Sender: FDA-Public Use
  Company Number: US-PFIZER INC-2017393793

PATIENT
  Age: 79 Year
  Sex: Female

DRUGS (1)
  1. ELELYSO [Suspect]
     Active Substance: TALIGLUCERASE ALFA
     Dosage: UNK, EVERY 2 WEEKS
     Route: 041
     Dates: end: 20170829

REACTIONS (5)
  - Blood pressure abnormal [Unknown]
  - Platelet count decreased [Unknown]
  - Non-Hodgkin^s lymphoma [Recovering/Resolving]
  - Death [Fatal]
  - Skin disorder [Unknown]

NARRATIVE: CASE EVENT DATE: 201704
